FAERS Safety Report 23303692 (Version 2)
Quarter: 2023Q4

REPORT INFORMATION
  Report Type: Other
  Country: KR (occurrence: KR)
  Receive Date: 20231215
  Receipt Date: 20231220
  Transmission Date: 20240109
  Serious: Yes (Other)
  Sender: FDA-Public Use
  Company Number: KR-ASTELLAS-2023US037472

PATIENT
  Age: 46 Year
  Sex: Male

DRUGS (2)
  1. MIRABEGRON [Suspect]
     Active Substance: MIRABEGRON
     Indication: Product used for unknown indication
     Route: 048
     Dates: start: 20200820, end: 20200826
  2. SILODOSIN [Suspect]
     Active Substance: SILODOSIN
     Indication: Product used for unknown indication
     Route: 048
     Dates: start: 20200820, end: 20200826

REACTIONS (5)
  - Retrograde ejaculation [Recovered/Resolved]
  - Heart rate irregular [Recovered/Resolved]
  - Chest pain [Recovered/Resolved]
  - Nausea [Recovered/Resolved]
  - Dyspnoea [Unknown]

NARRATIVE: CASE EVENT DATE: 20200826
